FAERS Safety Report 17252796 (Version 1)
Quarter: 2020Q1

REPORT INFORMATION
  Report Type: Spontaneous
  Country: FR (occurrence: FR)
  Receive Date: 20200109
  Receipt Date: 20200109
  Transmission Date: 20200409
  Serious: Yes (Hospitalization, Other)
  Sender: FDA-Public Use
  Company Number: FR-MYLANLABS-2020M1001827

PATIENT
  Age: 7 Decade
  Sex: Male
  Weight: 80 kg

DRUGS (6)
  1. MELPHALAN. [Suspect]
     Active Substance: MELPHALAN
     Indication: PRODUCT USED FOR UNKNOWN INDICATION
     Dosage: 200 MILLIGRAM/SQ. METER
     Route: 065
  2. VELCADE [Suspect]
     Active Substance: BORTEZOMIB
     Indication: PRODUCT USED FOR UNKNOWN INDICATION
     Dosage: UNK
     Route: 065
     Dates: start: 20141125
  3. ENDOXAN                            /00021101/ [Concomitant]
     Active Substance: CYCLOPHOSPHAMIDE
     Indication: CHEMOTHERAPY
     Dosage: UNK
  4. DEXAMETHASONE. [Suspect]
     Active Substance: DEXAMETHASONE
     Indication: MONOCLONAL GAMMOPATHY
     Dosage: UNK
  5. DEXAMETHASONE. [Suspect]
     Active Substance: DEXAMETHASONE
     Indication: PLASMA CELL MYELOMA
     Dosage: UNK
  6. THALIDOMIDE [Suspect]
     Active Substance: THALIDOMIDE
     Indication: PRODUCT USED FOR UNKNOWN INDICATION
     Dosage: UNK
     Route: 065

REACTIONS (13)
  - Douglas^ abscess [Unknown]
  - Hyponatraemia [Unknown]
  - Monoclonal gammopathy [Unknown]
  - Intra-abdominal fluid collection [Unknown]
  - Infection [Unknown]
  - Gastrointestinal necrosis [Unknown]
  - General physical health deterioration [Unknown]
  - Sepsis syndrome [Unknown]
  - Peritoneal abscess [Unknown]
  - Short-bowel syndrome [Unknown]
  - Bacteroides bacteraemia [Unknown]
  - Acute kidney injury [Unknown]
  - Diverticulitis [Unknown]

NARRATIVE: CASE EVENT DATE: 20141202
